FAERS Safety Report 7384612-1 (Version None)
Quarter: 2011Q1

REPORT INFORMATION
  Report Type: 
  Country: None (occurrence: None)
  Receive Date: 20110330
  Receipt Date: 20110323
  Transmission Date: 20110831
  Serious: Yes (Other)
  Sender: FDA-Public Use
  Company Number: CHPA2011US04446

PATIENT
  Age: 55 Year
  Sex: Female
  Weight: 49.887 kg

DRUGS (4)
  1. EXCEDRIN (MIGRAINE) [Suspect]
     Indication: MIGRAINE
     Dosage: UNK, TID
     Route: 048
     Dates: start: 19910101
  2. ANTIEPILEPTICS [Concomitant]
     Indication: CONVULSION
     Dosage: UNK, UNK
  3. ANTIMIGRAINE PREPARATIONS [Concomitant]
     Indication: MIGRAINE
     Dosage: UNK, UNK
  4. ANXIOLYTICS [Concomitant]
     Indication: ANXIETY
     Dosage: UNK, UNK

REACTIONS (3)
  - DRUG DEPENDENCE [None]
  - PALPITATIONS [None]
  - INTENTIONAL DRUG MISUSE [None]
